FAERS Safety Report 9350377 (Version 1)
Quarter: 2013Q2

REPORT INFORMATION
  Report Type: Spontaneous
  Country: GB (occurrence: GB)
  Receive Date: 20130617
  Receipt Date: 20130617
  Transmission Date: 20140414
  Serious: Yes (Life-Threatening)
  Sender: FDA-Public Use
  Company Number: GB-JNJFOC-20130608387

PATIENT
  Sex: 0

DRUGS (9)
  1. DOXORUBICIN [Suspect]
     Indication: DIFFUSE LARGE B-CELL LYMPHOMA
     Dosage: SIX CYCLE OF R-CHOP-14 EVERY 14
     Route: 042
  2. CYCLOPHOSPHAMIDE [Suspect]
     Indication: DIFFUSE LARGE B-CELL LYMPHOMA
     Dosage: SIX CYCLES OF R-CHOP EVERY 14 DAYS PLUS TWO CYCLES OF RITUXIMAB (R-CHOP-14)
     Route: 042
  3. VINCRISTINE [Suspect]
     Indication: DIFFUSE LARGE B-CELL LYMPHOMA
     Dosage: EIGHT CYCLES OF R-CHOP EVERY 21 DAYS (R-CHOP-21
     Route: 065
  4. RITUXIMAB [Suspect]
     Indication: DIFFUSE LARGE B-CELL LYMPHOMA
     Dosage: TWO FURTHER INFUSIONS ON DAY 1 EVERY 14 DAYS
     Route: 065
  5. RITUXIMAB [Suspect]
     Indication: DIFFUSE LARGE B-CELL LYMPHOMA
     Dosage: ON DAY 1
     Route: 065
  6. PREDNISOLONE [Suspect]
     Indication: DIFFUSE LARGE B-CELL LYMPHOMA
     Dosage: RECEIVE SIX CYCLES OF R-CHOP EVERY 14 DAYS PLUS TWO CYCLES OF RITUXIMAB (R-CHOP-14), DAYS 1 TO 5
     Route: 048
  7. LENOGRASTIM [Concomitant]
     Indication: PRODUCT USED FOR UNKNOWN INDICATION
     Dosage: DAYS 4?12 OF EACH CYCLE TO PATIENTS RANDOMLY ASSIGNED TO R-CHOP-14
     Route: 065
  8. ALLOPURINOL [Concomitant]
     Indication: PRODUCT USED FOR UNKNOWN INDICATION
     Route: 065
  9. COTRIMOXAZOLE [Concomitant]
     Indication: PRODUCT USED FOR UNKNOWN INDICATION
     Route: 065

REACTIONS (1)
  - Multi-organ failure [Unknown]
